FAERS Safety Report 24458311 (Version 1)
Quarter: 2024Q4

REPORT INFORMATION
  Report Type: Report from Study
  Country: US (occurrence: US)
  Receive Date: 20241018
  Receipt Date: 20241018
  Transmission Date: 20250115
  Serious: No
  Sender: ROCHE
  Company Number: US-ROCHE-3527513

PATIENT
  Age: 72 Year
  Sex: Female

DRUGS (1)
  1. RITUXAN [Suspect]
     Active Substance: RITUXIMAB
     Indication: Rheumatoid arthritis
     Dosage: GOT 2 INFUSIONS WITHIN 2 WEEKS EACH TIME
     Route: 042
     Dates: end: 202312

REACTIONS (6)
  - Ear pruritus [Unknown]
  - Rhinorrhoea [Unknown]
  - Sneezing [Unknown]
  - Swelling [Recovering/Resolving]
  - Skin mass [Recovering/Resolving]
  - Throat irritation [Unknown]

NARRATIVE: CASE EVENT DATE: 20230601
